FAERS Safety Report 9652192 (Version 2)
Quarter: 2013Q4

REPORT INFORMATION
  Report Type: Spontaneous
  Country: US (occurrence: None)
  Receive Date: 20131025
  Receipt Date: 20131212
  Transmission Date: 20140711
  Serious: Yes (Hospitalization, Other)
  Sender: FDA-Public Use
  Company Number: DSU-2013-04845

PATIENT
  Age: 60 Year
  Sex: Female
  Weight: 62.14 kg

DRUGS (3)
  1. BENICAR [Suspect]
     Indication: HYPERTENSION
     Route: 048
  2. MELOXICAM (MELOXICAM) (MELOXICAM) [Concomitant]
  3. OMEPRAZOLE (OMEPRAZOLE) (OMEPRAZOLE) [Concomitant]

REACTIONS (5)
  - Hypoaesthesia oral [None]
  - Hypoaesthesia [None]
  - Hypersensitivity [None]
  - Feeling abnormal [None]
  - Knee arthroplasty [None]
